FAERS Safety Report 14266065 (Version 2)
Quarter: 2017Q4

REPORT INFORMATION
  Report Type: Spontaneous
  Country: CN (occurrence: CN)
  Receive Date: 20171209
  Receipt Date: 20171227
  Transmission Date: 20180321
  Serious: Yes (Other)
  Sender: FDA-Public Use
  Company Number: CN-BAXTER-2017BAX041397

PATIENT
  Sex: Female

DRUGS (1)
  1. 5% GLUCOSE  INJECTION [Suspect]
     Active Substance: DEXTROSE
     Indication: SURGERY
     Dosage: DOSE: HALF BAG OF 1000 ML
     Route: 065
     Dates: start: 20171127, end: 20171127

REACTIONS (2)
  - Septic shock [Recovering/Resolving]
  - Disease progression [Recovering/Resolving]

NARRATIVE: CASE EVENT DATE: 201711
